FAERS Safety Report 6519956-6 (Version None)
Quarter: 2009Q4

REPORT INFORMATION
  Report Type: 
  Country: None (occurrence: None)
  Receive Date: 20091229
  Receipt Date: 20091218
  Transmission Date: 20100525
  Serious: Yes (Hospitalization)
  Sender: FDA-Public Use
  Company Number: IT-ALLERGAN-0917469US

PATIENT
  Age: 7 Year
  Sex: Male

DRUGS (2)
  1. LUXAZONE [Suspect]
     Indication: EYE INJURY
     Dosage: 12 GTT, QD
     Route: 047
     Dates: start: 20080101, end: 20080401
  2. NETILDEX [Concomitant]
     Dosage: 12 GTT, QD
     Route: 047
     Dates: start: 20070901, end: 20071201

REACTIONS (1)
  - CUSHING'S SYNDROME [None]
